FAERS Safety Report 4996604-8 (Version None)
Quarter: 2006Q2

REPORT INFORMATION
  Report Type: 
  Country: None (occurrence: None)
  Receive Date: 20060505
  Receipt Date: 20060424
  Transmission Date: 20061013
  Serious: Yes (Hospitalization)
  Sender: FDA-Public Use
  Company Number: 2006BI005972

PATIENT
  Age: 66 Year
  Sex: Female
  Weight: 95.2554 kg

DRUGS (4)
  1. AVONEX [Suspect]
     Indication: MULTIPLE SCLEROSIS
     Dosage: 30 UG; QW; IM; SEE IMAGE
     Route: 030
     Dates: start: 20050101, end: 20051001
  2. AVONEX [Suspect]
     Indication: MULTIPLE SCLEROSIS
     Dosage: 30 UG; QW; IM; SEE IMAGE
     Route: 030
     Dates: start: 20060101
  3. BLOOD PRESSURE MEDICATION [Concomitant]
  4. A LOT OF MEDICATION (NOS) [Concomitant]

REACTIONS (5)
  - DYSPNOEA [None]
  - FEELING HOT [None]
  - JOINT SWELLING [None]
  - KNEE ARTHROPLASTY [None]
  - THYROID DISORDER [None]
